FAERS Safety Report 7361338-1 (Version None)
Quarter: 2011Q1

REPORT INFORMATION
  Report Type: 
  Country: None (occurrence: None)
  Receive Date: 20110318
  Receipt Date: 20110314
  Transmission Date: 20110831
  Serious: Yes (Hospitalization)
  Sender: FDA-Public Use
  Company Number: B0705686A

PATIENT
  Age: 3 Year
  Sex: Female
  Weight: 12.2 kg

DRUGS (3)
  1. TRILEPTAL [Suspect]
     Indication: EPILEPSY
     Route: 048
     Dates: start: 20101208, end: 20101226
  2. CLAMOXYL [Suspect]
     Route: 065
     Dates: start: 20101224
  3. AUGMENTIN '125' [Suspect]
     Route: 048
     Dates: start: 20101214, end: 20101221

REACTIONS (6)
  - LACRIMATION INCREASED [None]
  - OEDEMA [None]
  - ERYTHEMA [None]
  - RASH MACULO-PAPULAR [None]
  - PRURITUS [None]
  - STEVENS-JOHNSON SYNDROME [None]
